FAERS Safety Report 7579144-1 (Version None)
Quarter: 2011Q2

REPORT INFORMATION
  Report Type: 
  Country: None (occurrence: None)
  Receive Date: 20110628
  Receipt Date: 20110620
  Transmission Date: 20111010
  Serious: Yes (Hospitalization, Disabling, Other)
  Sender: FDA-Public Use
  Company Number: GB-CEPHALON-2010004756

PATIENT
  Sex: Male

DRUGS (5)
  1. TREANDA [Suspect]
     Indication: MANTLE CELL LYMPHOMA
     Route: 041
     Dates: start: 20100414
  2. LANSOPRAZOLE [Suspect]
  3. TREANDA [Suspect]
     Route: 041
     Dates: start: 20100707, end: 20100708
  4. RITUXIMAB [Suspect]
     Indication: MANTLE CELL LYMPHOMA
     Route: 042
     Dates: end: 20100707
  5. TREANDA [Suspect]
     Route: 041

REACTIONS (3)
  - NEUTROPENIA [None]
  - PANCYTOPENIA [None]
  - THROMBOCYTOPENIA [None]
